FAERS Safety Report 7359769-9 (Version None)
Quarter: 2011Q1

REPORT INFORMATION
  Report Type: 
  Country: None (occurrence: None)
  Receive Date: 20110317
  Receipt Date: 20110314
  Transmission Date: 20110831
  Serious: Yes (Hospitalization)
  Sender: FDA-Public Use
  Company Number: IT-ABBOTT-11P-083-0706017-00

PATIENT
  Age: 14 Year
  Sex: Female

DRUGS (5)
  1. LAMOTRIGINE [Suspect]
     Indication: CONVULSION
     Dosage: DAILY DOSE: 100MG
     Route: 048
     Dates: start: 20101220, end: 20110109
  2. DEPAKENE [Suspect]
     Indication: CONVULSION
     Dosage: DAILY DOSE: 1GM
     Route: 048
     Dates: start: 20101001, end: 20110109
  3. AMOXICILLIN TRIHYDRATE [Suspect]
     Indication: LYMPHADENITIS
     Dosage: DAILY DOSE: 2GM
     Route: 048
     Dates: start: 20110102, end: 20110104
  4. AMOXICILLIN TRIHYDRATE [Suspect]
     Indication: OROPHARYNGEAL PAIN
  5. TACHIPIRINA [Concomitant]
     Indication: PRODUCT USED FOR UNKNOWN INDICATION

REACTIONS (3)
  - PAPULE [None]
  - MUCOUS MEMBRANE DISORDER [None]
  - STEVENS-JOHNSON SYNDROME [None]
